FAERS Safety Report 8803703 (Version 3)
Quarter: 2012Q4

REPORT INFORMATION
  Report Type: 
  Country: JP (occurrence: JP)
  Receive Date: 20120924
  Receipt Date: 20121024
  Transmission Date: 20130627
  Serious: Yes (Life-Threatening)
  Sender: FDA-Public Use
  Company Number: JP-JNJFOC-20120907582

PATIENT
  Age: 72 Year
  Sex: Female
  Weight: 53 kg

DRUGS (6)
  1. REMICADE [Suspect]
     Indication: RHEUMATOID ARTHRITIS
     Route: 042
     Dates: start: 20090616
  2. REMICADE [Suspect]
     Indication: RHEUMATOID ARTHRITIS
     Route: 042
     Dates: start: 20120820
  3. PREDONINE [Suspect]
     Indication: RHEUMATOID ARTHRITIS
     Route: 048
     Dates: start: 20120302, end: 20120820
  4. METHOTREXATE [Suspect]
     Indication: RHEUMATOID ARTHRITIS
     Route: 048
     Dates: start: 20090604, end: 20120820
  5. DIOVAN [Concomitant]
     Indication: HYPERTENSION
     Route: 048
  6. CRESTOR [Concomitant]
     Indication: HYPERLIPIDAEMIA
     Route: 048

REACTIONS (1)
  - Disseminated tuberculosis [Not Recovered/Not Resolved]
